FAERS Safety Report 5641414-1 (Version None)
Quarter: 2008Q1

REPORT INFORMATION
  Report Type: 
  Country: None (occurrence: None)
  Receive Date: 20080227
  Receipt Date: 20070803
  Transmission Date: 20080703
  Serious: No
  Sender: FDA-Public Use
  Company Number: A0667808A

PATIENT
  Age: 56 Year

DRUGS (4)
  1. NICORETTE [Suspect]
     Dates: start: 20070730, end: 20070731
  2. LISINOPRIL [Concomitant]
  3. PRAVACHOL [Concomitant]
  4. ASPIRIN [Concomitant]

REACTIONS (3)
  - PSYCHOMOTOR HYPERACTIVITY [None]
  - SENSATION OF BLOOD FLOW [None]
  - SLEEP DISORDER [None]
